FAERS Safety Report 22201816 (Version 2)
Quarter: 2023Q2

REPORT INFORMATION
  Report Type: Spontaneous
  Country: US (occurrence: US)
  Receive Date: 20230412
  Receipt Date: 20230630
  Transmission Date: 20230722
  Serious: No
  Sender: FDA-Public Use
  Company Number: US-SA-SAC20230411000641

PATIENT
  Sex: Male

DRUGS (1)
  1. DUPIXENT [Suspect]
     Active Substance: DUPILUMAB
     Dosage: 300 MG , OTHER
     Route: 058

REACTIONS (5)
  - Dyspnoea [Unknown]
  - Injection site pruritus [Unknown]
  - Injection site pain [Unknown]
  - Product preparation error [Unknown]
  - Product dose omission issue [Unknown]
